FAERS Safety Report 9167943 (Version 3)
Quarter: 2013Q2

REPORT INFORMATION
  Report Type: Spontaneous
  Country: IL (occurrence: IL)
  Receive Date: 20130318
  Receipt Date: 20130401
  Transmission Date: 20140414
  Serious: Yes (Other)
  Sender: FDA-Public Use
  Company Number: IL-JNJFOC-20130307351

PATIENT
  Sex: Male

DRUGS (2)
  1. PREZISTA [Suspect]
     Indication: HIV INFECTION
     Route: 048
     Dates: start: 2013
  2. PROGRAF [Interacting]
     Indication: TRANSPLANT
     Route: 048
     Dates: end: 20130307

REACTIONS (2)
  - Viral load increased [Recovering/Resolving]
  - Drug interaction [Recovering/Resolving]
